FAERS Safety Report 9758950 (Version 1)
Quarter: 2013Q4

REPORT INFORMATION
  Report Type: Spontaneous
  Country: US (occurrence: None)
  Receive Date: 20131216
  Receipt Date: 20131216
  Transmission Date: 20140711
  Serious: Yes (Hospitalization)
  Sender: FDA-Public Use
  Company Number: FK201300467(0)

PATIENT
  Age: 62 Year
  Sex: Male

DRUGS (1)
  1. OCTREOTIDE ACETATE [Suspect]
     Indication: DIARRHOEA
     Dosage: 200 UG, THREE TIMES PER DAY, SUBCUTANEOUS?

REACTIONS (2)
  - Diarrhoea [None]
  - Drug ineffective [None]
